FAERS Safety Report 9562645 (Version 2)
Quarter: 2013Q3

REPORT INFORMATION
  Report Type: Spontaneous
  Country: TR (occurrence: TR)
  Receive Date: 20130927
  Receipt Date: 20130927
  Transmission Date: 20140515
  Serious: Yes (Death, Hospitalization, Disabling)
  Sender: FDA-Public Use
  Company Number: TR-ABBVIE-13X-161-1144903-00

PATIENT
  Age: 23 Year
  Sex: Female
  Weight: 50 kg

DRUGS (2)
  1. KLACID [Suspect]
     Indication: LUNG INFECTION
     Route: 048
     Dates: start: 201301, end: 201308
  2. UNKNOWN MEDICATION [Concomitant]
     Indication: LUNG INFECTION
     Dates: start: 201301

REACTIONS (2)
  - Pneumonia [Fatal]
  - Deafness [Not Recovered/Not Resolved]
